FAERS Safety Report 17684339 (Version 2)
Quarter: 2021Q2

REPORT INFORMATION
  Report Type: Spontaneous
  Country: US (occurrence: US)
  Receive Date: 20200420
  Receipt Date: 20210416
  Transmission Date: 20210716
  Serious: Yes (Other)
  Sender: FDA-Public Use
  Company Number: US-ASTRAZENECA-2020SE50783

PATIENT
  Age: 20905 Day
  Sex: Female
  Weight: 93.9 kg

DRUGS (39)
  1. NEXIUM [Suspect]
     Active Substance: ESOMEPRAZOLE MAGNESIUM
     Route: 048
     Dates: start: 200101, end: 201612
  2. AVELOX [Concomitant]
     Active Substance: MOXIFLOXACIN HYDROCHLORIDE
  3. VENTOLIN [Concomitant]
     Active Substance: ALBUTEROL SULFATE
  4. HYDROCHLOROTHIAZIDE. [Concomitant]
     Active Substance: HYDROCHLOROTHIAZIDE
  5. LISINOPRIL. [Concomitant]
     Active Substance: LISINOPRIL
  6. LITHIUM. [Concomitant]
     Active Substance: LITHIUM
  7. DULERA [Concomitant]
     Active Substance: FORMOTEROL FUMARATE DIHYDRATE\MOMETASONE FUROATE
  8. TESTOSTERONE. [Concomitant]
     Active Substance: TESTOSTERONE
  9. VIVELLE?DOT [Concomitant]
     Active Substance: ESTRADIOL
  10. AMLODIPINE [Concomitant]
     Active Substance: AMLODIPINE BESYLATE
  11. METHYLPREDNISOLONE. [Concomitant]
     Active Substance: METHYLPREDNISOLONE
  12. SEREVENT DISKUS [Concomitant]
     Active Substance: SALMETEROL XINAFOATE
  13. LOCOID [Concomitant]
     Active Substance: HYDROCORTISONE BUTYRATE
  14. PHENTERMINE. [Concomitant]
     Active Substance: PHENTERMINE
  15. CLOBEX [Concomitant]
     Active Substance: CLOBETASOL PROPIONATE
  16. NASACORT [Concomitant]
     Active Substance: TRIAMCINOLONE ACETONIDE
  17. BREO ELLIPTA [Concomitant]
     Active Substance: FLUTICASONE FUROATE\VILANTEROL TRIFENATATE
  18. PERCOGESIC [Concomitant]
  19. DORYX [Concomitant]
     Active Substance: DOXYCYCLINE HYCLATE
  20. ELESTAT [Concomitant]
     Active Substance: EPINASTINE HYDROCHLORIDE
  21. TRAZODONE [Concomitant]
     Active Substance: TRAZODONE HYDROCHLORIDE
  22. NITROFURANTOIN. [Concomitant]
     Active Substance: NITROFURANTOIN
  23. PRILOSEC [Suspect]
     Active Substance: OMEPRAZOLE MAGNESIUM
     Route: 048
     Dates: start: 200101, end: 201612
  24. DEXILANT [Suspect]
     Active Substance: DEXLANSOPRAZOLE
     Route: 065
     Dates: start: 200101, end: 201612
  25. MUCINEX [Concomitant]
     Active Substance: GUAIFENESIN
  26. TOBRAMYCIN. [Concomitant]
     Active Substance: TOBRAMYCIN
  27. FLUCONAZOLE. [Concomitant]
     Active Substance: FLUCONAZOLE
  28. CYMBALTA [Concomitant]
     Active Substance: DULOXETINE HYDROCHLORIDE
  29. VYVANSE [Concomitant]
     Active Substance: LISDEXAMFETAMINE DIMESYLATE
  30. RISPERIDONE. [Concomitant]
     Active Substance: RISPERIDONE
  31. ACETA?GESIC [Concomitant]
     Active Substance: ACETAMINOPHEN\DIPHENHYDRAMINE HYDROCHLORIDE
  32. NITROFURANTOIN. [Concomitant]
     Active Substance: NITROFURANTOIN
  33. PROMETRIUM [Concomitant]
     Active Substance: PROGESTERONE
  34. AZITHROMYCIN ANHYDROUS. [Concomitant]
     Active Substance: AZITHROMYCIN ANHYDROUS
  35. CIPROFLOXACIN. [Concomitant]
     Active Substance: CIPROFLOXACIN
  36. PROAIR HFA [Concomitant]
     Active Substance: ALBUTEROL SULFATE
  37. ASMANEX [Concomitant]
     Active Substance: MOMETASONE FUROATE
  38. ALBUTEROL. [Concomitant]
     Active Substance: ALBUTEROL
  39. DEPAKOTE [Concomitant]
     Active Substance: DIVALPROEX SODIUM

REACTIONS (1)
  - Chronic kidney disease [Unknown]

NARRATIVE: CASE EVENT DATE: 20111026
